FAERS Safety Report 25253694 (Version 1)
Quarter: 2025Q2

REPORT INFORMATION
  Report Type: Spontaneous
  Country: US (occurrence: US)
  Receive Date: 20250430
  Receipt Date: 20250430
  Transmission Date: 20250717
  Serious: Yes (Hospitalization, Other)
  Sender: NOVITIUM PHARMA
  Company Number: US-NOVITIUMPHARMA-2025USNVP00991

PATIENT
  Age: 75 Year
  Sex: Male

DRUGS (1)
  1. SULFAMETHOXAZOLE\TRIMETHOPRIM [Suspect]
     Active Substance: SULFAMETHOXAZOLE\TRIMETHOPRIM
     Indication: Urinary tract infection

REACTIONS (5)
  - Necrotising oesophagitis [Unknown]
  - Nephropathy toxic [Unknown]
  - Dysphagia [Recovering/Resolving]
  - Nausea [Unknown]
  - Vomiting [Recovering/Resolving]
